FAERS Safety Report 23255773 (Version 1)
Quarter: 2023Q4

REPORT INFORMATION
  Report Type: Spontaneous
  Country: AU (occurrence: AU)
  Receive Date: 20231204
  Receipt Date: 20231204
  Transmission Date: 20240109
  Serious: Yes (Death, Other)
  Sender: FDA-Public Use
  Company Number: AU-BRISTOL-MYERS SQUIBB COMPANY-2023-173704

PATIENT
  Age: 48 Year
  Sex: Female

DRUGS (24)
  1. THALIDOMIDE [Suspect]
     Active Substance: THALIDOMIDE
     Indication: Product used for unknown indication
  2. LENALIDOMIDE [Suspect]
     Active Substance: LENALIDOMIDE
     Indication: Product used for unknown indication
     Dates: start: 2016
  3. SPIRONOLACTONE [Suspect]
     Active Substance: SPIRONOLACTONE
     Indication: Product used for unknown indication
  4. SPIRONOLACTONE [Suspect]
     Active Substance: SPIRONOLACTONE
  5. SPIRONOLACTONE [Suspect]
     Active Substance: SPIRONOLACTONE
  6. SPIRONOLACTONE [Suspect]
     Active Substance: SPIRONOLACTONE
  7. SPIRONOLACTONE [Suspect]
     Active Substance: SPIRONOLACTONE
  8. SACUBITRIL\VALSARTAN [Suspect]
     Active Substance: SACUBITRIL\VALSARTAN
     Indication: Product used for unknown indication
     Dosage: INTERVAL 1 DAY, 51/49MG BD
  9. RAMIPRIL [Suspect]
     Active Substance: RAMIPRIL
     Indication: Product used for unknown indication
  10. RAMIPRIL [Suspect]
     Active Substance: RAMIPRIL
  11. RAMIPRIL [Suspect]
     Active Substance: RAMIPRIL
  12. RAMIPRIL [Suspect]
     Active Substance: RAMIPRIL
  13. RAMIPRIL [Suspect]
     Active Substance: RAMIPRIL
  14. MELPHALAN [Suspect]
     Active Substance: MELPHALAN
     Indication: Product used for unknown indication
  15. DEXAMETHASONE [Suspect]
     Active Substance: DEXAMETHASONE
     Indication: Product used for unknown indication
  16. DAPAGLIFLOZIN PROPANEDIOL [Suspect]
     Active Substance: DAPAGLIFLOZIN PROPANEDIOL
     Indication: Product used for unknown indication
     Dosage: INTERVAL 1 DAY
  17. CYCLOPHOSPHAMIDE [Suspect]
     Active Substance: CYCLOPHOSPHAMIDE
     Indication: Product used for unknown indication
  18. CARFILZOMIB [Suspect]
     Active Substance: CARFILZOMIB
     Indication: Product used for unknown indication
     Dates: start: 201804
  19. BORTEZOMIB [Suspect]
     Active Substance: BORTEZOMIB
     Indication: Product used for unknown indication
  20. BISOPROLOL FUMARATE [Suspect]
     Active Substance: BISOPROLOL FUMARATE
     Indication: Product used for unknown indication
  21. BISOPROLOL FUMARATE [Suspect]
     Active Substance: BISOPROLOL FUMARATE
  22. BISOPROLOL FUMARATE [Suspect]
     Active Substance: BISOPROLOL FUMARATE
  23. BISOPROLOL FUMARATE [Suspect]
     Active Substance: BISOPROLOL FUMARATE
  24. BISOPROLOL FUMARATE [Suspect]
     Active Substance: BISOPROLOL FUMARATE

REACTIONS (19)
  - Anxiety [Unknown]
  - Ascites [Fatal]
  - Atelectasis [Unknown]
  - Bradycardia [Fatal]
  - Brain fog [Unknown]
  - Cardiac failure [Fatal]
  - Cardiogenic shock [Fatal]
  - Drug intolerance [Unknown]
  - Effusion [Fatal]
  - Functional gastrointestinal disorder [Fatal]
  - Hepatic hypoperfusion [Fatal]
  - Congestive hepatopathy [Fatal]
  - Multiple organ dysfunction syndrome [Fatal]
  - Poor quality sleep [Unknown]
  - Pulmonary oedema [Fatal]
  - Pulseless electrical activity [Fatal]
  - Renal failure [Fatal]
  - Asthma [Unknown]
  - Malignant neoplasm progression [Unknown]

NARRATIVE: CASE EVENT DATE: 20171101
